FAERS Safety Report 10178433 (Version 1)
Quarter: 2014Q2

REPORT INFORMATION
  Report Type: Spontaneous
  Country: FR (occurrence: FR)
  Receive Date: 20140519
  Receipt Date: 20140519
  Transmission Date: 20141212
  Serious: Yes (Hospitalization)
  Sender: FDA-Public Use
  Company Number: FR-JNJFOC-20140506989

PATIENT
  Age: 87 Year
  Sex: Male

DRUGS (1)
  1. XARELTO [Suspect]
     Indication: CEREBROVASCULAR ACCIDENT PROPHYLAXIS
     Route: 048

REACTIONS (4)
  - Ischaemic stroke [Unknown]
  - Aphasia [Unknown]
  - Hemiparesis [Unknown]
  - Drug ineffective [Unknown]
